FAERS Safety Report 9308557 (Version 1)
Quarter: 2013Q2

REPORT INFORMATION
  Report Type: Spontaneous
  Country: CN (occurrence: CN)
  Receive Date: 20130524
  Receipt Date: 20130524
  Transmission Date: 20140414
  Serious: Yes (Other)
  Sender: FDA-Public Use
  Company Number: CN-JNJFOC-20130514648

PATIENT
  Age: 64 Year
  Sex: Female

DRUGS (1)
  1. RISPERDAL [Suspect]
     Indication: ABNORMAL BEHAVIOUR
     Route: 048
     Dates: start: 20120816, end: 20120822

REACTIONS (3)
  - Renal disorder [Unknown]
  - Urinary retention [Not Recovered/Not Resolved]
  - Change of bowel habit [Unknown]
